FAERS Safety Report 23115236 (Version 5)
Quarter: 2023Q4

REPORT INFORMATION
  Report Type: Report from Study
  Country: US (occurrence: US)
  Receive Date: 20231027
  Receipt Date: 20231116
  Transmission Date: 20240110
  Serious: Yes (Hospitalization)
  Sender: FDA-Public Use
  Company Number: US-JNJFOC-20231055840

PATIENT
  Age: 2 Decade
  Sex: Female
  Weight: 33.2 kg

DRUGS (6)
  1. INFLIXIMAB [Suspect]
     Active Substance: INFLIXIMAB
     Indication: Inflammatory bowel disease
     Route: 041
     Dates: start: 20131127, end: 20161128
  2. INFLIXIMAB [Suspect]
     Active Substance: INFLIXIMAB
     Route: 041
     Dates: start: 20170206, end: 20191008
  3. MESALAMINE [Concomitant]
     Active Substance: MESALAMINE
  4. FOLIC ACID [Concomitant]
     Active Substance: FOLIC ACID
  5. AZATHIOPRINE [Concomitant]
     Active Substance: AZATHIOPRINE
  6. HYDROXYUREA [Concomitant]
     Active Substance: HYDROXYUREA

REACTIONS (1)
  - Sickle cell anaemia with crisis [Recovered/Resolved]

NARRATIVE: CASE EVENT DATE: 20231002
